FAERS Safety Report 4836394-2 (Version None)
Quarter: 2005Q4

REPORT INFORMATION
  Report Type: 
  Country: None (occurrence: None)
  Receive Date: 20051123
  Receipt Date: 20051115
  Transmission Date: 20060501
  Serious: Yes (Hospitalization)
  Sender: FDA-Public Use
  Company Number: FR-ROCHE-424949

PATIENT
  Age: 38 Year
  Sex: Female

DRUGS (6)
  1. LOXEN [Suspect]
     Indication: TOCOLYSIS
     Route: 042
  2. LOXEN [Suspect]
     Route: 042
  3. LOXEN [Suspect]
     Route: 042
  4. LOXEN [Suspect]
     Route: 042
  5. SALBUTAMOL [Suspect]
     Indication: TOCOLYSIS
     Route: 042
  6. BETAMETHASONE [Concomitant]
     Indication: PROPHYLAXIS
     Route: 030

REACTIONS (8)
  - ACUTE PULMONARY OEDEMA [None]
  - BLADDER DISTENSION [None]
  - CAESAREAN SECTION [None]
  - CARDIAC MURMUR [None]
  - CHOLESTASIS OF PREGNANCY [None]
  - DRUG EXPOSURE DURING PREGNANCY [None]
  - HEART RATE INCREASED [None]
  - RESPIRATORY DISTRESS [None]
